FAERS Safety Report 7097133-0 (Version None)
Quarter: 2010Q4

REPORT INFORMATION
  Report Type: 
  Country: None (occurrence: None)
  Receive Date: 20101111
  Receipt Date: 20101105
  Transmission Date: 20110411
  Serious: Yes (Other)
  Sender: FDA-Public Use
  Company Number: CA-PFIZER INC-2010141329

PATIENT
  Sex: Male

DRUGS (2)
  1. ZELDOX [Suspect]
     Dosage: 20 MG, 2X/DAY
  2. PROZAC [Concomitant]
     Dosage: 60 MG, UNK

REACTIONS (3)
  - BRADYCARDIA [None]
  - HYPERSOMNIA [None]
  - HYPOTENSION [None]
